FAERS Safety Report 9861681 (Version 1)
Quarter: 2014Q1

REPORT INFORMATION
  Report Type: Spontaneous
  Country: US (occurrence: None)
  Receive Date: 20140130
  Receipt Date: 20140130
  Transmission Date: 20141002
  Serious: Yes (Life-Threatening)
  Sender: FDA-Public Use
  Company Number: FK201400190

PATIENT
  Age: 47 Year
  Sex: Male

DRUGS (17)
  1. ONDANSETRON [Suspect]
     Indication: PRODUCT USED FOR UNKNOWN INDICATION
  2. DULOXETINE [Suspect]
     Indication: DEPRESSION
  3. TRAZODONE [Suspect]
     Indication: DEPRESSION
     Dosage: 100 MG , DAILY AT BEDTIME
  4. FENTANYL [Suspect]
     Indication: INDUCTION OF ANAESTHESIA
     Dosage: 50 UG, UNK, INTRAVENOUS (NOT OTHERWISE SPECIFIED)
     Route: 042
  5. FENTANYL [Suspect]
     Indication: PAIN
     Dosage: 50 UG, UNK, INTRAVENOUS (NOT OTHERWISE SPECIFIED)
     Route: 042
  6. MIDAZOLAM (MIDAZOLAM) [Concomitant]
  7. PROPOFOL (PROPOFOL) [Concomitant]
  8. SUCCINYLCHOLINE (SUXAMETHONIUM CHLORIDE) [Concomitant]
  9. DESFLURANE (DESFLURANE) [Concomitant]
  10. VECURONIUM (VECURONIUM) [Concomitant]
  11. KETAMINE (KETAMINE) [Concomitant]
  12. GLUCOPURROLATE (GLYCOPYRRONUM) [Concomitant]
  13. NEOSTIGMNE (NEOSTIGMINE) [Concomitant]
  14. ESMOLOL (ESMOLOL) [Concomitant]
  15. LORAZEPAM (LORAZEPAM) [Concomitant]
  16. HYDROMORPHONE (HYDROMORPHONE) [Concomitant]
  17. GABAPENTIN (GABAPENTIN) [Concomitant]

REACTIONS (3)
  - Serotonin syndrome [None]
  - Post procedural complication [None]
  - Acidosis [None]
